FAERS Safety Report 4893883-2 (Version None)
Quarter: 2006Q1

REPORT INFORMATION
  Report Type: 
  Country: None (occurrence: None)
  Receive Date: 20060127
  Receipt Date: 20050406
  Transmission Date: 20060701
  Serious: No
  Sender: FDA-Public Use
  Company Number: US-BRISTOL-MYERS SQUIBB COMPANY-12924874

PATIENT
  Sex: Female

DRUGS (1)
  1. CEFZIL [Suspect]

REACTIONS (2)
  - NAUSEA [None]
  - VOMITING [None]
